FAERS Safety Report 4788772-8 (Version None)
Quarter: 2005Q4

REPORT INFORMATION
  Report Type: 
  Country: None (occurrence: None)
  Receive Date: 20051004
  Receipt Date: 20050926
  Transmission Date: 20060501
  Serious: Yes (Life-Threatening, Hospitalization, Other)
  Sender: FDA-Public Use
  Company Number: 2005-01489

PATIENT
  Age: 51 Year
  Sex: Male
  Weight: 85 kg

DRUGS (4)
  1. VELCADE [Suspect]
     Indication: MULTIPLE MYELOMA
     Dosage: 2.60 MG, INTRAVENOUS
     Route: 042
     Dates: start: 20050630, end: 20050707
  2. DURAGESIC-100 [Concomitant]
  3. TRIAMTERENE AND HYDROCHLOROTHIAZIDE [Concomitant]
  4. TRIAMTERENE AND HYDROCHLOROTHIAZIDE [Concomitant]

REACTIONS (10)
  - BONE PAIN [None]
  - DISEASE PROGRESSION [None]
  - DYSPNOEA [None]
  - LIGHT CHAIN ANALYSIS INCREASED [None]
  - PARAPLEGIA [None]
  - PLEURAL FIBROSIS [None]
  - POLYNEUROPATHY IDIOPATHIC PROGRESSIVE [None]
  - PULMONARY EMBOLISM [None]
  - PULMONARY THROMBOSIS [None]
  - SYNCOPE [None]
